FAERS Safety Report 16323175 (Version 1)
Quarter: 2019Q2

REPORT INFORMATION
  Report Type: Spontaneous
  Country: GB (occurrence: GB)
  Receive Date: 20190517
  Receipt Date: 20190517
  Transmission Date: 20190711
  Serious: Yes (Hospitalization)
  Sender: FDA-Public Use
  Company Number: GB-TEVA-2019-GB-1049990

PATIENT
  Age: 63 Year
  Sex: Female
  Weight: 57 kg

DRUGS (4)
  1. DIAZEPAM. [Concomitant]
     Active Substance: DIAZEPAM
     Dosage: 1-2 AT NIGHT
     Dates: start: 20190211
  2. MIRTAZAPINE. [Suspect]
     Active Substance: MIRTAZAPINE
     Route: 048
     Dates: start: 20190329, end: 20190330
  3. TEMAZEPAM. [Concomitant]
     Active Substance: TEMAZEPAM
     Dosage: 10 MILLIGRAM DAILY; AT NIGHT, OCCASIONAL USE ONLY
     Dates: start: 20190114
  4. DIAZEPAM. [Concomitant]
     Active Substance: DIAZEPAM
     Dates: start: 20190211

REACTIONS (3)
  - Bradycardia [Recovered/Resolved]
  - Unresponsive to stimuli [Unknown]
  - Hypotension [Unknown]

NARRATIVE: CASE EVENT DATE: 20190330
